FAERS Safety Report 20145954 (Version 2)
Quarter: 2022Q1

REPORT INFORMATION
  Report Type: Spontaneous
  Country: US (occurrence: US)
  Receive Date: 20211203
  Receipt Date: 20220107
  Transmission Date: 20220423
  Serious: Yes (Death)
  Sender: FDA-Public Use
  Company Number: US-009507513-2112USA000442

PATIENT
  Age: 64 Year
  Sex: Male

DRUGS (4)
  1. DIFICID [Suspect]
     Active Substance: FIDAXOMICIN
     Indication: Clostridium difficile infection
  2. TIGECYCLINE [Suspect]
     Active Substance: TIGECYCLINE
     Indication: Clostridium difficile infection
  3. VANCOMYCIN [Suspect]
     Active Substance: VANCOMYCIN
     Indication: Clostridium difficile infection
  4. METRONIDAZOLE [Suspect]
     Active Substance: METRONIDAZOLE
     Indication: Clostridium difficile infection

REACTIONS (1)
  - Therapy non-responder [Fatal]
